FAERS Safety Report 6067565-8 (Version None)
Quarter: 2009Q1

REPORT INFORMATION
  Report Type: 
  Country: None (occurrence: None)
  Receive Date: 20090205
  Receipt Date: 20090126
  Transmission Date: 20090719
  Serious: Yes (Death, Other)
  Sender: FDA-Public Use
  Company Number: US-BAXTER-2009BH001619

PATIENT
  Sex: Female

DRUGS (3)
  1. HEPARIN SODIUM INJECTION [Suspect]
     Indication: DRUG USE FOR UNKNOWN INDICATION
     Route: 042
     Dates: start: 20061228
  2. HEPARIN SODIUM INJECTION [Suspect]
     Route: 042
     Dates: start: 20061228
  3. HEPARIN SODIUM INJECTION [Suspect]
     Route: 042
     Dates: start: 20051228

REACTIONS (4)
  - HEPARIN-INDUCED THROMBOCYTOPENIA [None]
  - MULTI-ORGAN FAILURE [None]
  - SKIN NECROSIS [None]
  - THROMBOSIS [None]
